FAERS Safety Report 12692803 (Version 2)
Quarter: 2020Q3

REPORT INFORMATION
  Report Type: Report from Study
  Country: GB (occurrence: GB)
  Receive Date: 20160829
  Receipt Date: 20160901
  Transmission Date: 20201105
  Serious: Yes (Hospitalization)
  Sender: FDA-Public Use
  Company Number: GB-BEH-2016072863

PATIENT
  Age: 75 Year
  Sex: Male

DRUGS (54)
  1. HIZENTRA [Suspect]
     Active Substance: HUMAN IMMUNOGLOBULIN G
     Dosage: 115 ML, TOT
     Route: 058
     Dates: start: 20160120, end: 20160120
  2. HIZENTRA [Suspect]
     Active Substance: HUMAN IMMUNOGLOBULIN G
     Dosage: 115 ML, TOT
     Route: 058
     Dates: start: 20160413, end: 20160413
  3. DOCUSATE SODIUM. [Concomitant]
     Active Substance: DOCUSATE SODIUM
     Indication: CONSTIPATION
     Dosage: 100 MG, BID
     Route: 048
     Dates: start: 20160617
  4. CALCIUM [Concomitant]
     Active Substance: CALCIUM
     Dosage: 300 MG, QD
     Route: 048
     Dates: start: 2012
  5. HIZENTRA [Suspect]
     Active Substance: HUMAN IMMUNOGLOBULIN G
     Dosage: 115 ML, TOT
     Route: 058
     Dates: start: 20160217, end: 20160217
  6. HIZENTRA [Suspect]
     Active Substance: HUMAN IMMUNOGLOBULIN G
     Dosage: 115 ML, TOT
     Route: 058
     Dates: start: 20160427, end: 20160427
  7. HIZENTRA [Suspect]
     Active Substance: HUMAN IMMUNOGLOBULIN G
     Dosage: 115 ML, TOT
     Route: 058
     Dates: start: 20160518, end: 20160518
  8. HIZENTRA [Suspect]
     Active Substance: HUMAN IMMUNOGLOBULIN G
     Dosage: 115 ML, TOT
     Route: 058
     Dates: start: 20160615, end: 20160615
  9. BISOPROLOL [Concomitant]
     Active Substance: BISOPROLOL
     Indication: ATRIAL FIBRILLATION
     Dosage: 2.5 MG, QD
     Route: 048
     Dates: start: 20160727
  10. HIZENTRA [Suspect]
     Active Substance: HUMAN IMMUNOGLOBULIN G
     Dosage: 115 ML, TOT
     Route: 058
     Dates: start: 20160106, end: 20160106
  11. HIZENTRA [Suspect]
     Active Substance: HUMAN IMMUNOGLOBULIN G
     Dosage: 115 ML, TOT
     Route: 058
     Dates: start: 20160203, end: 20160203
  12. HIZENTRA [Suspect]
     Active Substance: HUMAN IMMUNOGLOBULIN G
     Dosage: 115 ML, TOT
     Route: 058
     Dates: start: 20160504, end: 20160504
  13. HIZENTRA [Suspect]
     Active Substance: HUMAN IMMUNOGLOBULIN G
     Dosage: 115 ML, TOT
     Route: 058
     Dates: start: 20160602, end: 20160602
  14. HIZENTRA [Suspect]
     Active Substance: HUMAN IMMUNOGLOBULIN G
     Dosage: 115 ML, TOT
     Route: 058
     Dates: start: 20160628, end: 20160628
  15. HIZENTRA [Suspect]
     Active Substance: HUMAN IMMUNOGLOBULIN G
     Dosage: 23 G, UNK
     Route: 058
     Dates: start: 20160810, end: 20160810
  16. PREGABALIN. [Concomitant]
     Active Substance: PREGABALIN
     Indication: CHRONIC INFLAMMATORY DEMYELINATING POLYRADICULONEUROPATHY
     Dosage: 300 MG, BID
     Route: 048
     Dates: start: 201502
  17. IBUPROFEN. [Concomitant]
     Active Substance: IBUPROFEN
     Indication: JOINT ARTHROPLASTY
     Dosage: 200 MG, PRN
     Route: 048
     Dates: start: 2005
  18. HIZENTRA [Suspect]
     Active Substance: HUMAN IMMUNOGLOBULIN G
     Dosage: 115 ML, TOT
     Route: 058
     Dates: start: 20151215, end: 20151215
  19. HIZENTRA [Suspect]
     Active Substance: HUMAN IMMUNOGLOBULIN G
     Dosage: 115 ML, TOT
     Route: 058
     Dates: start: 20160210, end: 20160210
  20. HIZENTRA [Suspect]
     Active Substance: HUMAN IMMUNOGLOBULIN G
     Dosage: 115 ML, TOT
     Route: 058
     Dates: start: 20160309, end: 20160309
  21. HIZENTRA [Suspect]
     Active Substance: HUMAN IMMUNOGLOBULIN G
     Dosage: 115 ML, TOT
     Route: 058
     Dates: start: 20160420, end: 20160420
  22. HIZENTRA [Suspect]
     Active Substance: HUMAN IMMUNOGLOBULIN G
     Dosage: 115 ML, TOT
     Route: 058
     Dates: start: 20160608, end: 20160608
  23. AMITRIPTYLINE [Concomitant]
     Active Substance: AMITRIPTYLINE
     Dosage: 30 MG, QD
     Route: 048
     Dates: start: 2012
  24. HIZENTRA [Suspect]
     Active Substance: HUMAN IMMUNOGLOBULIN G
     Dosage: 115 ML, TOT
     Route: 058
     Dates: start: 20151223, end: 20151223
  25. HIZENTRA [Suspect]
     Active Substance: HUMAN IMMUNOGLOBULIN G
     Dosage: 115 ML, TOT
     Route: 058
     Dates: start: 20160316, end: 20160316
  26. TINZAPARIN [Concomitant]
     Active Substance: TINZAPARIN
     Dosage: 20000 IU, TOT
     Route: 058
     Dates: start: 20160727, end: 20160727
  27. CHLORAMPHENICOL [Concomitant]
     Active Substance: CHLORAMPHENICOL
     Indication: SEASONAL ALLERGY
     Dosage: 1 DF, BID
     Route: 061
     Dates: start: 20160728
  28. ALENDRONIC ACID [Concomitant]
     Active Substance: ALENDRONIC ACID
     Indication: OSTEOPOROSIS
     Dosage: 70 MG, QW
     Route: 048
     Dates: start: 2012
  29. CODEINE [Concomitant]
     Active Substance: CODEINE
     Indication: OSTEOARTHRITIS
     Dosage: 8 MG, PRN
     Route: 048
     Dates: start: 201502
  30. LANSOPRAZOLE. [Concomitant]
     Active Substance: LANSOPRAZOLE
     Indication: GASTROOESOPHAGEAL REFLUX DISEASE
     Dosage: 30 MG, PRN
     Route: 048
     Dates: start: 1990
  31. HIZENTRA [Suspect]
     Active Substance: HUMAN IMMUNOGLOBULIN G
     Dosage: 115 ML, TOT
     Route: 058
     Dates: start: 20151230, end: 20151230
  32. HIZENTRA [Suspect]
     Active Substance: HUMAN IMMUNOGLOBULIN G
     Dosage: 115 ML, TOT
     Route: 058
     Dates: start: 20160127, end: 20160127
  33. HIZENTRA [Suspect]
     Active Substance: HUMAN IMMUNOGLOBULIN G
     Dosage: 115 ML, TOT
     Route: 058
     Dates: start: 20160323, end: 20160323
  34. HIZENTRA [Suspect]
     Active Substance: HUMAN IMMUNOGLOBULIN G
     Dosage: 115 ML, TOT
     Route: 058
     Dates: start: 20160330, end: 20160330
  35. HIZENTRA [Suspect]
     Active Substance: HUMAN IMMUNOGLOBULIN G
     Dosage: 115 ML, TOT
     Route: 058
     Dates: start: 20160526, end: 20160526
  36. HIZENTRA [Suspect]
     Active Substance: HUMAN IMMUNOGLOBULIN G
     Dosage: 115 ML, TOT
     Route: 058
     Dates: start: 20160621, end: 20160621
  37. HIZENTRA [Suspect]
     Active Substance: HUMAN IMMUNOGLOBULIN G
     Dosage: 115 ML, TOT
     Route: 058
     Dates: start: 20160713, end: 20160713
  38. FEXOFENADINE [Concomitant]
     Active Substance: FEXOFENADINE HYDROCHLORIDE
     Indication: SEASONAL ALLERGY
     Dosage: 120 MG, QD
     Route: 048
     Dates: start: 20160726
  39. RIVAROXABAN [Concomitant]
     Active Substance: RIVAROXABAN
     Indication: ATRIAL FIBRILLATION
     Dosage: 20 MG, QD
     Route: 048
     Dates: start: 20160727
  40. GLICLAZIDE [Concomitant]
     Active Substance: GLICLAZIDE
     Indication: DIABETES MELLITUS
     Dosage: 30 MG, QD
     Route: 048
     Dates: start: 2012
  41. HIZENTRA [Suspect]
     Active Substance: HUMAN IMMUNOGLOBULIN G
     Dosage: 115 ML, TOT
     Route: 058
     Dates: start: 20160113, end: 20160113
  42. HIZENTRA [Suspect]
     Active Substance: HUMAN IMMUNOGLOBULIN G
     Dosage: 115 ML, TOT
     Route: 058
     Dates: start: 20160303, end: 20160303
  43. HIZENTRA [Suspect]
     Active Substance: HUMAN IMMUNOGLOBULIN G
     Dosage: 115 ML, TOT
     Route: 058
     Dates: start: 20160511, end: 20160511
  44. HIZENTRA [Suspect]
     Active Substance: HUMAN IMMUNOGLOBULIN G
     Dosage: 115 ML, TOT
     Route: 058
     Dates: start: 20160706, end: 20160706
  45. AMITRIPTYLINE [Concomitant]
     Active Substance: AMITRIPTYLINE
     Indication: CHRONIC INFLAMMATORY DEMYELINATING POLYRADICULONEUROPATHY
     Dosage: 15 MG, QD
     Route: 048
     Dates: start: 201605
  46. DOCUSATE SODIUM. [Concomitant]
     Active Substance: DOCUSATE SODIUM
     Dosage: 200 MG, BID
     Route: 048
     Dates: start: 2012
  47. METFORMIN [Concomitant]
     Active Substance: METFORMIN HYDROCHLORIDE
     Indication: DIABETES MELLITUS
     Dosage: 500 MG, BID
     Route: 048
     Dates: start: 201207
  48. PARACETAMOL [Concomitant]
     Active Substance: ACETAMINOPHEN
     Indication: OSTEOARTHRITIS
     Dosage: 500 MG, PRN
     Route: 048
     Dates: start: 2013
  49. VITAMIN D3 [Concomitant]
     Active Substance: CHOLECALCIFEROL
     Indication: SUPPLEMENTATION THERAPY
     Dosage: 5 ?G, QD
     Route: 048
     Dates: start: 2012
  50. HIZENTRA [Suspect]
     Active Substance: HUMAN IMMUNOGLOBULIN G
     Indication: CHRONIC INFLAMMATORY DEMYELINATING POLYRADICULONEUROPATHY
     Dosage: 115 ML, TOT
     Route: 058
     Dates: start: 20151209, end: 20151209
  51. HIZENTRA [Suspect]
     Active Substance: HUMAN IMMUNOGLOBULIN G
     Dosage: 115 ML, TOT
     Route: 058
     Dates: start: 20160223, end: 20160223
  52. HIZENTRA [Suspect]
     Active Substance: HUMAN IMMUNOGLOBULIN G
     Dosage: 115 ML, TOT
     Route: 058
     Dates: start: 20160406, end: 20160406
  53. AMOXYCILLIN                        /00249601/ [Concomitant]
     Active Substance: AMOXICILLIN
     Indication: DYSPNOEA
     Dosage: 500 MG, TID
     Route: 048
     Dates: start: 20160726, end: 20160727
  54. TINZAPARIN [Concomitant]
     Active Substance: TINZAPARIN
     Indication: PROPHYLAXIS
     Dosage: 5000 IU, TOT
     Route: 058
     Dates: start: 20160728, end: 20160728

REACTIONS (1)
  - Sepsis [Recovered/Resolved]

NARRATIVE: CASE EVENT DATE: 20160816
